FAERS Safety Report 7211263-1 (Version None)
Quarter: 2011Q1

REPORT INFORMATION
  Report Type: 
  Country: None (occurrence: None)
  Receive Date: 20110105
  Receipt Date: 20101119
  Transmission Date: 20110831
  Serious: No
  Sender: FDA-Public Use
  Company Number: US-JNJFOC-20101107371

PATIENT
  Sex: Female
  Weight: 124.74 kg

DRUGS (2)
  1. AMPHETAMINE AND DEXTROAMPHETAMINE SALTS [Concomitant]
     Indication: SOMNOLENCE
  2. INVEGA [Suspect]
     Indication: BIPOLAR DISORDER
     Route: 048

REACTIONS (3)
  - DRUG DOSE OMISSION [None]
  - GALACTORRHOEA [None]
  - ALOPECIA [None]
